FAERS Safety Report 5872608-8 (Version None)
Quarter: 2008Q3

REPORT INFORMATION
  Report Type: 
  Country: None (occurrence: None)
  Receive Date: 20080905
  Receipt Date: 20080827
  Transmission Date: 20090109
  Serious: Yes (Hospitalization)
  Sender: FDA-Public Use
  Company Number: FR-ROCHE-583359

PATIENT
  Sex: Female

DRUGS (11)
  1. ROCEPHIN [Suspect]
     Route: 065
     Dates: start: 20080320, end: 20080403
  2. SPIRIVA [Concomitant]
     Route: 055
  3. RENITEC [Concomitant]
     Route: 048
     Dates: end: 20080403
  4. PLAVIX [Concomitant]
     Route: 048
  5. LASIX [Concomitant]
     Route: 048
  6. MOPRAL [Concomitant]
  7. BROMAZEPAM [Concomitant]
     Route: 048
     Dates: end: 20080304
  8. FLIXONASE [Concomitant]
     Dosage: ROUTE: NASAL
     Route: 050
  9. HYDROCORTISONE [Concomitant]
     Route: 048
  10. STILNOX [Concomitant]
     Route: 048
  11. TOPALGIC [Concomitant]

REACTIONS (1)
  - CYTOLYTIC HEPATITIS [None]
